FAERS Safety Report 5306436-9 (Version None)
Quarter: 2007Q2

REPORT INFORMATION
  Report Type: 
  Country: None (occurrence: None)
  Receive Date: 20070419
  Receipt Date: 20070416
  Transmission Date: 20071010
  Serious: Yes (Life-Threatening)
  Sender: FDA-Public Use
  Company Number: 07H-167-0312434-00

PATIENT
  Age: 82 Year
  Sex: Male
  Weight: 60 kg

DRUGS (2)
  1. FENTANYL CITRATE [Suspect]
     Indication: ANAESTHESIA
     Dosage: 100 MCG
     Dates: start: 20070320, end: 20070320
  2. PROPOFOL [Suspect]
     Indication: ANAESTHESIA
     Dosage: 150 MG
     Dates: start: 20070320, end: 20070320

REACTIONS (1)
  - ANAPHYLACTIC REACTION [None]
